FAERS Safety Report 9230886 (Version 1)
Quarter: 2013Q2

REPORT INFORMATION
  Report Type: Spontaneous
  Country: MX (occurrence: MX)
  Receive Date: 20130415
  Receipt Date: 20130415
  Transmission Date: 20140414
  Serious: Yes (Death, Hospitalization)
  Sender: FDA-Public Use
  Company Number: PHHY2013MX035939

PATIENT
  Age: 70 Year
  Sex: Female

DRUGS (1)
  1. EXFORGE HCT [Suspect]
     Indication: HYPERTENSION
     Dosage: 1 DF, (VALSARTAN 160MG, AMLODIPINE 5MG AND HYDROCHLOROTHIAZIDE 12.5MG) DAILY
     Route: 048
     Dates: start: 20111114

REACTIONS (2)
  - Cardiac arrest [Fatal]
  - Headache [Unknown]
